FAERS Safety Report 4603093-1 (Version None)
Quarter: 2005Q1

REPORT INFORMATION
  Report Type: 
  Country: None (occurrence: None)
  Receive Date: 20050307
  Receipt Date: 20050218
  Transmission Date: 20050727
  Serious: Yes (Death, Hospitalization, Other)
  Sender: FDA-Public Use
  Company Number: 2005020300

PATIENT
  Age: 81 Year
  Sex: Male

DRUGS (3)
  1. CARDURAN (DOXAZOSIN) [Suspect]
     Indication: BENIGN PROSTATIC HYPERPLASIA
     Dosage: 4 MG (4 MG, 1 IN 1 D), ORAL
     Route: 048
     Dates: start: 19980528, end: 20050113
  2. MIDAZOLAM HCL [Concomitant]
  3. CHLORTALIDONE (CHLORTALIDONE) [Concomitant]

REACTIONS (8)
  - ABASIA [None]
  - CARDIOMEGALY [None]
  - DEMENTIA ALZHEIMER'S TYPE [None]
  - INFLUENZA [None]
  - ISCHAEMIA [None]
  - MULTI-ORGAN FAILURE [None]
  - RESPIRATORY TRACT INFECTION [None]
  - SUDDEN DEATH [None]
